FAERS Safety Report 7152747-4 (Version None)
Quarter: 2010Q4

REPORT INFORMATION
  Report Type: 
  Country: None (occurrence: None)
  Receive Date: 20101213
  Receipt Date: 20101203
  Transmission Date: 20110411
  Serious: Yes (Other)
  Sender: FDA-Public Use
  Company Number: US-JNJFOC-20101202807

PATIENT
  Age: 8 Year
  Sex: Female

DRUGS (1)
  1. ITRACONAZOLE [Suspect]
     Indication: DERMATOPHYTOSIS
     Route: 065

REACTIONS (3)
  - ERYTHEMA NODOSUM [None]
  - KERION [None]
  - SKIN INFECTION [None]
